FAERS Safety Report 14565017 (Version 7)
Quarter: 2021Q3

REPORT INFORMATION
  Report Type: Report from Study
  Country: CN (occurrence: CN)
  Receive Date: 20180223
  Receipt Date: 20210722
  Transmission Date: 20211014
  Serious: Yes (Hospitalization)
  Sender: FDA-Public Use
  Company Number: CN-ROCHE-2073745

PATIENT
  Age: 74 Year
  Sex: Female
  Weight: 46 kg

DRUGS (7)
  1. CISPLATIN. [Suspect]
     Active Substance: CISPLATIN
     Indication: NON-SMALL CELL LUNG CANCER
     Dosage: DATE OF MOST RECENT DOSE OF CISPLATIN (104 MG) PRIOR TO ADVERSE EVENT: 01/OCT/2017
     Route: 042
     Dates: start: 20170727
  2. FUROSEMIDE. [Concomitant]
     Active Substance: FUROSEMIDE
     Indication: LUNG NEOPLASM MALIGNANT
     Dates: start: 20180308
  3. ATEZOLIZUMAB. [Suspect]
     Active Substance: ATEZOLIZUMAB
     Indication: NON-SMALL CELL LUNG CANCER
     Dosage: DATE OF MOST RECENT DOSE OF ATEZOLIZUMAB (1200 MG) PRIOR TO THE ADVERSE EVENT: 30/JAN/2018
     Route: 042
     Dates: start: 20171106
  4. GEMCITABINE. [Suspect]
     Active Substance: GEMCITABINE
     Indication: NON-SMALL CELL LUNG CANCER
     Dosage: DATE OF MOST RECENT DOSE OF GEMCITABINE (1400 MG) PRIOR TO THE ADVERSE EVENT: 11/OCT/2017
     Route: 042
     Dates: start: 20170727
  5. PARACETAMOL [Concomitant]
     Active Substance: ACETAMINOPHEN
     Indication: RESPIRATORY TRACT INFECTION
     Dates: start: 20180211, end: 20180308
  6. METOCLOPRAMIDE. [Concomitant]
     Active Substance: METOCLOPRAMIDE
     Indication: PROPHYLAXIS
     Dates: start: 20171002
  7. METOPROLOL TARTRATE. [Concomitant]
     Active Substance: METOPROLOL TARTRATE
     Indication: LUNG NEOPLASM MALIGNANT
     Dates: start: 20180308

REACTIONS (1)
  - Viral myocarditis [Recovered/Resolved]

NARRATIVE: CASE EVENT DATE: 20180211
